FAERS Safety Report 8114607-1 (Version None)
Quarter: 2012Q1

REPORT INFORMATION
  Report Type: 
  Country: None (occurrence: None)
  Receive Date: 20120206
  Receipt Date: 20120201
  Transmission Date: 20120608
  Serious: Yes (Other)
  Sender: FDA-Public Use
  Company Number: US-PFIZER INC-2012028450

PATIENT
  Sex: Female
  Weight: 90.703 kg

DRUGS (2)
  1. ZESTORETIC [Concomitant]
     Indication: HYPERTENSION
     Dosage: UNK
  2. CELEBREX [Suspect]
     Indication: OSTEOARTHRITIS
     Dosage: 200 MG, 1X/DAY
     Route: 048
     Dates: start: 20020101

REACTIONS (3)
  - BIPOLAR I DISORDER [None]
  - BIPOLAR DISORDER [None]
  - MENTAL IMPAIRMENT [None]
